FAERS Safety Report 13073239 (Version 1)
Quarter: 2016Q4

REPORT INFORMATION
  Report Type: Spontaneous
  Country: US (occurrence: US)
  Receive Date: 20161229
  Receipt Date: 20161229
  Transmission Date: 20170207
  Serious: Yes (Other)
  Sender: FDA-Public Use
  Company Number: US-TEVA-724251ACC

PATIENT
  Age: 23 Year
  Sex: Female
  Weight: 66.74 kg

DRUGS (3)
  1. PARAGARD T 380A [Suspect]
     Active Substance: COPPER
     Indication: CONTRACEPTION
     Dates: start: 20160816, end: 20161222
  2. PARAGARD T 380A [Suspect]
     Active Substance: COPPER
     Dates: start: 20161222
  3. VITAMINS [Concomitant]
     Active Substance: VITAMINS
     Indication: SUPPLEMENTATION THERAPY

REACTIONS (4)
  - Device dislocation [Recovered/Resolved]
  - Device expulsion [Recovered/Resolved]
  - Abdominal pain lower [Unknown]
  - Pelvic pain [Unknown]

NARRATIVE: CASE EVENT DATE: 20161215
